FAERS Safety Report 19482308 (Version 1)
Quarter: 2021Q2

REPORT INFORMATION
  Report Type: Spontaneous
  Country: US (occurrence: US)
  Receive Date: 20210630
  Receipt Date: 20210630
  Transmission Date: 20210717
  Serious: Yes (Other)
  Sender: FDA-Public Use
  Company Number: None

PATIENT
  Age: 64 Year
  Sex: Male
  Weight: 74.84 kg

DRUGS (12)
  1. OLANZAPINE 10MG [Suspect]
     Active Substance: OLANZAPINE
  2. FISH OIL [Concomitant]
     Active Substance: FISH OIL
  3. EUTHROX [Concomitant]
     Active Substance: LEVOTHYROXINE SODIUM
  4. FLUOXETINE [Suspect]
     Active Substance: FLUOXETINE HYDROCHLORIDE
     Indication: EMOTIONAL DISORDER
     Route: 048
     Dates: start: 2000
  5. FLUOXETINE [Suspect]
     Active Substance: FLUOXETINE HYDROCHLORIDE
     Indication: ANXIETY
     Route: 048
     Dates: start: 2000
  6. EYE VITAMIN [Concomitant]
  7. ALEVE [Concomitant]
     Active Substance: NAPROXEN SODIUM
  8. ASPIRIN. [Concomitant]
     Active Substance: ASPIRIN
  9. VITAMIN C [Concomitant]
     Active Substance: ASCORBIC ACID
  10. MULTIVITAMAN [Concomitant]
  11. JOINT RELIEVER [Concomitant]
  12. ENZYMES [Concomitant]

REACTIONS (27)
  - Musculoskeletal stiffness [None]
  - Tension [None]
  - Thought blocking [None]
  - Emotional disorder [None]
  - Pain [None]
  - Fatigue [None]
  - Piriformis syndrome [None]
  - Insomnia [None]
  - Therapeutic product effect variable [None]
  - Dizziness [None]
  - Musculoskeletal pain [None]
  - Hypertension [None]
  - Arthralgia [None]
  - Lethargy [None]
  - Anxiety [None]
  - Peripheral swelling [None]
  - Eating disorder [None]
  - Disturbance in attention [None]
  - Blood thyroid stimulating hormone decreased [None]
  - Condition aggravated [None]
  - Adverse drug reaction [None]
  - Decreased appetite [None]
  - Coordination abnormal [None]
  - Drug interaction [None]
  - Muscle tightness [None]
  - Diarrhoea [None]
  - Fluid retention [None]

NARRATIVE: CASE EVENT DATE: 20210329
